FAERS Safety Report 9889807 (Version 3)
Quarter: 2014Q1

REPORT INFORMATION
  Report Type: Spontaneous
  Country: US (occurrence: US)
  Receive Date: 20140212
  Receipt Date: 20140304
  Transmission Date: 20141002
  Serious: Yes (Hospitalization, Disabling, Other)
  Sender: FDA-Public Use
  Company Number: US-009507513-1402USA002225

PATIENT
  Age: 19 Year
  Sex: Female

DRUGS (1)
  1. NEXPLANON [Suspect]
     Indication: CONTRACEPTION
     Dosage: 1 DF, 1 ROD
     Route: 059
     Dates: start: 201304

REACTIONS (3)
  - Limb amputation [Not Recovered/Not Resolved]
  - Accident [Not Recovered/Not Resolved]
  - Medical device complication [Not Recovered/Not Resolved]
